FAERS Safety Report 7602535-7 (Version None)
Quarter: 2011Q3

REPORT INFORMATION
  Report Type: 
  Country: None (occurrence: None)
  Receive Date: 20110701
  Receipt Date: 20110617
  Transmission Date: 20111222
  Serious: Yes (Hospitalization, Disabling, Other)
  Sender: FDA-Public Use
  Company Number: 2010MA001018

PATIENT
  Sex: Male
  Weight: 99.7913 kg

DRUGS (35)
  1. PROPOXYPHENE HYDROCHLORIDE [Concomitant]
  2. ZYPREXA [Concomitant]
  3. NEXIUM [Concomitant]
  4. DONNATAL [Concomitant]
  5. CELEXA [Concomitant]
  6. PRILOSEC [Concomitant]
  7. SIMVASTATIN [Concomitant]
  8. CATAFLAM [Concomitant]
  9. CARAFATE [Concomitant]
  10. OXYCONTIN [Concomitant]
  11. GEMFIBROZIL [Concomitant]
  12. PREVPAC [Concomitant]
  13. PERCOCET [Concomitant]
  14. ZANTAC [Concomitant]
  15. DARVOCET [Concomitant]
  16. METOCLOPRAMIDE [Suspect]
     Dosage: 50 MG
     Dates: start: 20070101, end: 20090101
  17. BENTYL [Concomitant]
  18. ZOCOR [Concomitant]
  19. MOBIC [Concomitant]
  20. LORCET-HD [Concomitant]
  21. ELAVIL [Concomitant]
  22. NEURONTIN [Concomitant]
  23. AMBIEN [Concomitant]
  24. DIAZEPAM [Concomitant]
  25. FIORINAL [Concomitant]
  26. IMITREX [Concomitant]
  27. CLONIDINE [Concomitant]
  28. TRAZODONE HCL [Concomitant]
  29. XANAX [Concomitant]
  30. HYDROCHLOROTHIAZIDE [Concomitant]
  31. BACLOFEN [Concomitant]
  32. LOVAZA [Concomitant]
  33. HYDROCODONE [Concomitant]
  34. ROXICODONE [Concomitant]
  35. FIORICET [Concomitant]

REACTIONS (34)
  - NERVOUS SYSTEM DISORDER [None]
  - DEFORMITY [None]
  - INJURY [None]
  - EXCESSIVE EYE BLINKING [None]
  - DRY MOUTH [None]
  - DYSKINESIA [None]
  - MENTAL DISORDER [None]
  - QUALITY OF LIFE DECREASED [None]
  - GRIMACING [None]
  - PERSONALITY CHANGE [None]
  - MUSCLE SPASMS [None]
  - REFUSAL OF TREATMENT BY PATIENT [None]
  - TARDIVE DYSKINESIA [None]
  - ACTIVITIES OF DAILY LIVING IMPAIRED [None]
  - BRUXISM [None]
  - DEPRESSION [None]
  - BALANCE DISORDER [None]
  - POST-TRAUMATIC STRESS DISORDER [None]
  - INSOMNIA [None]
  - HEADACHE [None]
  - INCORRECT DRUG ADMINISTRATION DURATION [None]
  - ANHEDONIA [None]
  - MULTIPLE INJURIES [None]
  - EXTRAPYRAMIDAL DISORDER [None]
  - FALL [None]
  - PAROTID GLAND ENLARGEMENT [None]
  - HEPATIC ENZYME INCREASED [None]
  - BLOOD TRIGLYCERIDES INCREASED [None]
  - LIMB INJURY [None]
  - PAIN [None]
  - ANXIETY [None]
  - ECONOMIC PROBLEM [None]
  - FAMILY STRESS [None]
  - BLOOD GLUCOSE INCREASED [None]
